FAERS Safety Report 22293563 (Version 1)
Quarter: 2023Q2

REPORT INFORMATION
  Report Type: Spontaneous
  Country: FR (occurrence: FR)
  Receive Date: 20230508
  Receipt Date: 20230508
  Transmission Date: 20230721
  Serious: Yes (Hospitalization, Other)
  Sender: FDA-Public Use
  Company Number: None

PATIENT

DRUGS (4)
  1. LAMOTRIGINE [Suspect]
     Active Substance: LAMOTRIGINE
     Indication: Affect lability
     Dosage: 25 MG, QD; 1 TABLET PER DAY
     Route: 065
     Dates: start: 20221205, end: 20221212
  2. LAMOTRIGINE [Suspect]
     Active Substance: LAMOTRIGINE
     Dosage: 50 MG, QD; 1 TABLET PER DAY
     Route: 065
     Dates: start: 20221212, end: 20221226
  3. LAMOTRIGINE [Suspect]
     Active Substance: LAMOTRIGINE
     Dosage: 100 MG, QD; 1 TABLET PER DAY
     Route: 065
     Dates: start: 20221226, end: 20230109
  4. LAMOTRIGINE [Suspect]
     Active Substance: LAMOTRIGINE
     Dosage: 200 MG, QD; 1 TABLET PER DAY
     Route: 065
     Dates: start: 20230109, end: 20230114

REACTIONS (1)
  - Drug reaction with eosinophilia and systemic symptoms [Recovering/Resolving]

NARRATIVE: CASE EVENT DATE: 20221231
